FAERS Safety Report 9092392 (Version 1)
Quarter: 2013Q1

REPORT INFORMATION
  Report Type: Spontaneous
  Country: US (occurrence: US)
  Receive Date: 20130218
  Receipt Date: 20130218
  Transmission Date: 20140127
  Serious: No
  Sender: FDA-Public Use
  Company Number: US-ABBOTT-12P-163-0995811-00

PATIENT
  Age: 43 Year
  Sex: Male
  Weight: 76.27 kg

DRUGS (2)
  1. SIMCOR 500/40 [Suspect]
     Indication: BLOOD CHOLESTEROL INCREASED
     Dosage: 500/40 MILLIGRAMS
     Dates: start: 201209
  2. LISINOPRIL [Suspect]
     Indication: HYPERTENSION

REACTIONS (2)
  - Flushing [Recovered/Resolved]
  - Abdominal discomfort [Recovered/Resolved]
